FAERS Safety Report 6551174-8 (Version None)
Quarter: 2010Q1

REPORT INFORMATION
  Report Type: 
  Country: None (occurrence: None)
  Receive Date: 20100121
  Receipt Date: 20100107
  Transmission Date: 20100710
  Serious: Yes (Life-Threatening, Hospitalization, Other)
  Sender: FDA-Public Use
  Company Number: 2010AL000104

PATIENT
  Age: 48 Year
  Sex: Male

DRUGS (5)
  1. BACLOFEN [Suspect]
     Indication: INTENTIONAL OVERDOSE
     Dosage: 840 MG;X1;PO
     Route: 048
  2. QUETIAPINE [Concomitant]
  3. SALICYLIC ACID [Concomitant]
  4. MIRTAZAPINE [Concomitant]
  5. GABAPENTIN [Concomitant]

REACTIONS (19)
  - AREFLEXIA [None]
  - BLOOD AMYLASE INCREASED [None]
  - BRADYCARDIA [None]
  - DEPRESSED LEVEL OF CONSCIOUSNESS [None]
  - DIABETES INSIPIDUS [None]
  - ELECTROCARDIOGRAM QT PROLONGED [None]
  - HYPERTENSION [None]
  - HYPOTENSION [None]
  - HYPOTHERMIA [None]
  - HYPOTONIA [None]
  - HYPOXIA [None]
  - LOSS OF CONSCIOUSNESS [None]
  - MULTIPLE DRUG OVERDOSE INTENTIONAL [None]
  - MUSCLE TWITCHING [None]
  - PARANOIA [None]
  - PUPIL FIXED [None]
  - RESPIRATORY RATE DECREASED [None]
  - SINUS BRADYCARDIA [None]
  - UNEVALUABLE EVENT [None]
